FAERS Safety Report 24466413 (Version 2)
Quarter: 2024Q4

REPORT INFORMATION
  Report Type: Spontaneous
  Country: US (occurrence: US)
  Receive Date: 20241018
  Receipt Date: 20241024
  Transmission Date: 20250114
  Serious: Yes (Other)
  Sender: PFIZER
  Company Number: US-PFIZER INC-202400278368

PATIENT
  Age: 77 Year
  Sex: Male
  Weight: 85.28 kg

DRUGS (4)
  1. TALZENNA [Suspect]
     Active Substance: TALAZOPARIB TOSYLATE
     Indication: Prostate cancer metastatic
     Dosage: 0.5 MG, 1X/DAY
     Route: 048
     Dates: start: 20240109, end: 2024
  2. TALZENNA [Suspect]
     Active Substance: TALAZOPARIB TOSYLATE
     Dosage: 0.5 MG, 1X/DAY
     Route: 048
     Dates: start: 20241006
  3. XTANDI [Suspect]
     Active Substance: ENZALUTAMIDE
     Indication: Prostate cancer metastatic
     Dosage: 640 MG, 1X/DAY
     Route: 048
     Dates: start: 20240109, end: 2024
  4. XTANDI [Suspect]
     Active Substance: ENZALUTAMIDE
     Dosage: 640 MG, 1X/DAY
     Route: 048
     Dates: start: 20241006

REACTIONS (3)
  - Full blood count decreased [Unknown]
  - Dizziness [Recovered/Resolved]
  - Loss of personal independence in daily activities [Recovered/Resolved]

NARRATIVE: CASE EVENT DATE: 20240101
